FAERS Safety Report 6481003-2 (Version None)
Quarter: 2009Q4

REPORT INFORMATION
  Report Type: 
  Country: None (occurrence: None)
  Receive Date: 20091208
  Receipt Date: 20091201
  Transmission Date: 20100525
  Serious: Yes (Other)
  Sender: FDA-Public Use
  Company Number: DE-AMGEN-UK365909

PATIENT
  Sex: Male
  Weight: 78 kg

DRUGS (9)
  1. MIMPARA [Suspect]
     Indication: DRUG USE FOR UNKNOWN INDICATION
     Route: 065
  2. METOHEXAL [Concomitant]
  3. NEXIUM [Concomitant]
  4. FUROSEMID [Concomitant]
  5. AMLODIPINE [Concomitant]
  6. FERROUS SULFATE TAB [Concomitant]
  7. VITAMIN D3 [Concomitant]
  8. FOSRENOL [Concomitant]
  9. NEORECORMON [Concomitant]

REACTIONS (2)
  - MYALGIA [None]
  - NAUSEA [None]
